FAERS Safety Report 22532846 (Version 1)
Quarter: 2023Q2

REPORT INFORMATION
  Report Type: Spontaneous
  Country: FR (occurrence: FR)
  Receive Date: 20230607
  Receipt Date: 20230607
  Transmission Date: 20230721
  Serious: Yes (Other)
  Sender: FDA-Public Use
  Company Number: FR-002147023-PHHY2019FR085289

PATIENT
  Age: 73 Year
  Sex: Male

DRUGS (3)
  1. VOLTAREN [Suspect]
     Active Substance: DICLOFENAC SODIUM
     Indication: Cauda equina syndrome
     Dosage: 75 MG, QD
     Route: 048
     Dates: start: 1995, end: 201903
  2. SKENAN [Suspect]
     Active Substance: MORPHINE SULFATE
     Indication: Cauda equina syndrome
     Dosage: UNK
     Route: 048
     Dates: start: 2014, end: 2018
  3. ACETAMINOPHEN\PROPOXYPHENE [Concomitant]
     Active Substance: ACETAMINOPHEN\PROPOXYPHENE
     Indication: Cauda equina syndrome
     Dosage: UNK
     Route: 048
     Dates: start: 2014

REACTIONS (5)
  - Intestinal haemorrhage [Recovered/Resolved]
  - Skin exfoliation [Recovered/Resolved]
  - Balance disorder [Recovered/Resolved]
  - Pustule [Recovered/Resolved]
  - Insomnia [Recovered/Resolved]
